FAERS Safety Report 7824461-0 (Version None)
Quarter: 2011Q4

REPORT INFORMATION
  Report Type: 
  Country: None (occurrence: None)
  Receive Date: 20111018
  Receipt Date: 20111018
  Transmission Date: 20120403
  Serious: Yes (Other)
  Sender: FDA-Public Use
  Company Number: None

PATIENT
  Age: 26 Year
  Sex: Male
  Weight: 81 kg

DRUGS (5)
  1. AZITHROMYCIN [Concomitant]
  2. TRUVADA [Concomitant]
  3. DAPSONE [Concomitant]
  4. (RILPIVIRINE) - ENDURANT [Suspect]
     Indication: HIV INFECTION
     Dosage: 1 PO DAILY WITH FOOD
     Route: 048
     Dates: start: 20111002, end: 20111010
  5. ZIDOVUDINE [Concomitant]

REACTIONS (3)
  - VOMITING [None]
  - NAUSEA [None]
  - RETCHING [None]
